FAERS Safety Report 8567117 (Version 6)
Quarter: 2013Q3

REPORT INFORMATION
  Report Type: Spontaneous
  Country: US (occurrence: US)
  Receive Date: 20120517
  Receipt Date: 20130828
  Transmission Date: 20140515
  Serious: Yes (Hospitalization, Disabling, Other)
  Sender: FDA-Public Use
  Company Number: US-MERCK-1111USA02486

PATIENT
  Sex: Female

DRUGS (5)
  1. FOSAMAX [Suspect]
     Indication: OSTEOPOROSIS
     Dosage: UNK
     Route: 048
     Dates: start: 20000104, end: 2007
  2. FOSAMAX [Suspect]
     Indication: OSTEOPENIA
  3. SYNTHROID [Concomitant]
  4. CYCRIN [Concomitant]
     Indication: HOT FLUSH
  5. HYDROGEN PEROXIDE [Concomitant]
     Indication: BREATH ODOUR
     Dosage: UNK

REACTIONS (33)
  - Pathological fracture [Not Recovered/Not Resolved]
  - Open reduction of fracture [Unknown]
  - Breast cancer metastatic [Unknown]
  - Humerus fracture [Unknown]
  - Low turnover osteopathy [Not Recovered/Not Resolved]
  - Osteonecrosis of jaw [Unknown]
  - Loose tooth [Unknown]
  - Spinal fracture [Unknown]
  - Hypertension [Unknown]
  - Hypothyroidism [Unknown]
  - Vertebroplasty [Unknown]
  - Device failure [Unknown]
  - Gingival bleeding [Unknown]
  - Tooth fracture [Unknown]
  - Tooth extraction [Unknown]
  - Fall [Unknown]
  - Thoracic vertebral fracture [Unknown]
  - Herpes zoster [Unknown]
  - Tooth crowding [Unknown]
  - Tooth fracture [Unknown]
  - Tooth fracture [Unknown]
  - Dental caries [Unknown]
  - Tooth extraction [Unknown]
  - Dental caries [Unknown]
  - Human bite [Recovering/Resolving]
  - Dental caries [Unknown]
  - Breath odour [Unknown]
  - Fall [Unknown]
  - Ligament sprain [Unknown]
  - Device failure [Unknown]
  - Device failure [Unknown]
  - Tooth abscess [Unknown]
  - Drug hypersensitivity [Unknown]
